FAERS Safety Report 9880131 (Version 1)
Quarter: 2014Q1

REPORT INFORMATION
  Report Type: Spontaneous
  Country: US (occurrence: US)
  Receive Date: 20140207
  Receipt Date: 20140207
  Transmission Date: 20141002
  Serious: No
  Sender: FDA-Public Use
  Company Number: US-BIOGENIDEC-2013BI114707

PATIENT
  Age: 55 Year
  Sex: Female

DRUGS (15)
  1. TECFIDERA [Suspect]
     Indication: MULTIPLE SCLEROSIS
     Dates: start: 201310
  2. TECFIDERA [Suspect]
     Indication: MULTIPLE SCLEROSIS
     Route: 048
     Dates: start: 20131028
  3. OXYGEN [Concomitant]
  4. COUMADIN [Concomitant]
  5. HUMALOG [Concomitant]
  6. LIPITOR [Concomitant]
  7. VENTOLIN HFA [Concomitant]
  8. VIT D [Concomitant]
  9. ZESTRIL [Concomitant]
  10. ASPIRIN (BAYER) [Concomitant]
  11. CLARITIN [Concomitant]
  12. TOPROL XI [Concomitant]
  13. LEXAPRO [Concomitant]
  14. VIT B COMPLEX [Concomitant]
  15. DYAZIDE [Concomitant]

REACTIONS (8)
  - Cystitis [Unknown]
  - Urinary tract infection [Unknown]
  - Respiratory tract infection viral [Unknown]
  - Headache [Unknown]
  - Multiple sclerosis relapse [Unknown]
  - Flushing [Not Recovered/Not Resolved]
  - Diarrhoea [Not Recovered/Not Resolved]
  - Vomiting [Unknown]
